FAERS Safety Report 14132786 (Version 4)
Quarter: 2018Q1

REPORT INFORMATION
  Report Type: Report from Study
  Country: US (occurrence: US)
  Receive Date: 20171026
  Receipt Date: 20180125
  Transmission Date: 20180508
  Serious: No
  Sender: FDA-Public Use
  Company Number: US-AMGEN-USASL2017123800

PATIENT
  Age: 58 Year
  Sex: Female

DRUGS (1)
  1. REPATHA [Suspect]
     Active Substance: EVOLOCUMAB
     Indication: BLOOD CHOLESTEROL INCREASED
     Dosage: 140 MG, Q2WK
     Route: 065
     Dates: start: 20170728

REACTIONS (10)
  - Eye swelling [Unknown]
  - Chronic spontaneous urticaria [Unknown]
  - Laryngitis [Unknown]
  - Inappropriate schedule of drug administration [Unknown]
  - Injury associated with device [Unknown]
  - Nasal congestion [Unknown]
  - Wrong technique in product usage process [Unknown]
  - Headache [Unknown]
  - Ill-defined disorder [Unknown]
  - Accidental exposure to product [Unknown]
